FAERS Safety Report 4955741-4 (Version None)
Quarter: 2006Q1

REPORT INFORMATION
  Report Type: 
  Country: None (occurrence: None)
  Receive Date: 20060328
  Receipt Date: 20060316
  Transmission Date: 20060701
  Serious: Yes (Hospitalization)
  Sender: FDA-Public Use
  Company Number: US-ROCHE-440544

PATIENT
  Age: 91 Year
  Sex: Male
  Weight: 70 kg

DRUGS (2)
  1. CAPECITABINE [Suspect]
     Indication: COLORECTAL CANCER METASTATIC
     Route: 048
     Dates: start: 20060112
  2. BEVACIZUMAB [Suspect]
     Indication: COLORECTAL CANCER METASTATIC
     Route: 042
     Dates: start: 20060112

REACTIONS (3)
  - ATRIAL THROMBOSIS [None]
  - INTRACARDIAC THROMBUS [None]
  - VISCERAL ARTERIAL ISCHAEMIA [None]
